FAERS Safety Report 5219094-9 (Version None)
Quarter: 2007Q1

REPORT INFORMATION
  Report Type: 
  Country: None (occurrence: None)
  Receive Date: 20070124
  Receipt Date: 20070124
  Transmission Date: 20070707
  Serious: Yes (Other)
  Sender: FDA-Public Use
  Company Number: None

PATIENT
  Sex: Male

DRUGS (10)
  1. METHYLPHENIDATE [Suspect]
     Indication: MAJOR DEPRESSION
     Dosage: 20 MG PO QID   SEVERAL YEARS
     Route: 048
  2. CYMBALTA [Concomitant]
  3. WELLBUTRIN [Concomitant]
  4. BUSPAR [Concomitant]
  5. LISINOPRIL [Concomitant]
  6. AMARYL [Concomitant]
  7. LESCOL [Concomitant]
  8. VERAPAMIL [Concomitant]
  9. ACTOS [Concomitant]
  10. INSULIN [Concomitant]

REACTIONS (1)
  - DRUG INEFFECTIVE [None]
